FAERS Safety Report 5592523-7 (Version None)
Quarter: 2008Q1

REPORT INFORMATION
  Report Type: 
  Country: None (occurrence: None)
  Receive Date: 20080111
  Receipt Date: 20080107
  Transmission Date: 20080703
  Serious: Yes (Death, Other)
  Sender: FDA-Public Use
  Company Number: 2007SP015546

PATIENT
  Age: 64 Year
  Sex: Female
  Weight: 38 kg

DRUGS (17)
  1. BETAMETHASONE [Suspect]
     Indication: ANAPLASTIC ASTROCYTOMA
     Dosage: ;PO
     Route: 048
     Dates: end: 20070523
  2. TEMODAL [Suspect]
     Indication: ANAPLASTIC ASTROCYTOMA
     Dosage: 150 MG/M2;QD; : 200 MG/M2;QD;
     Dates: start: 20070131, end: 20070204
  3. TEMODAL [Suspect]
     Indication: ANAPLASTIC ASTROCYTOMA
     Dosage: 150 MG/M2;QD; : 200 MG/M2;QD;
     Dates: start: 20070228, end: 20070304
  4. BAKTAR [Concomitant]
  5. ZONISAMIDE [Concomitant]
  6. GASTER D [Concomitant]
  7. MAGNESIUM OXIDE [Concomitant]
  8. MYSTAN [Concomitant]
  9. BIOFERMIN [Concomitant]
  10. BONALON [Concomitant]
  11. AMARYL [Concomitant]
  12. VASOLAN [Concomitant]
  13. HUMULIN 70/30 [Concomitant]
  14. RISEDRONATE SODIUM [Concomitant]
  15. TAGAMET [Concomitant]
  16. KYTRIL [Concomitant]
  17. LAXOBERON [Concomitant]

REACTIONS (6)
  - CONDITION AGGRAVATED [None]
  - DISSEMINATED INTRAVASCULAR COAGULATION [None]
  - INFECTION [None]
  - NEOPLASM PROGRESSION [None]
  - PLATELET COUNT DECREASED [None]
  - PNEUMONIA ASPIRATION [None]
